FAERS Safety Report 11850188 (Version 1)
Quarter: 2015Q4

REPORT INFORMATION
  Report Type: Spontaneous
  Country: US (occurrence: US)
  Receive Date: 20151218
  Receipt Date: 20151218
  Transmission Date: 20160305
  Serious: No
  Sender: FDA-Public Use
  Company Number: US-JNJFOC-20151120841

PATIENT
  Age: 37 Year
  Sex: Female
  Weight: 83.92 kg

DRUGS (2)
  1. TYLENOL [Suspect]
     Active Substance: ACETAMINOPHEN
     Indication: HEADACHE
     Dosage: 1-2 TABLETS PER DAY OR EVERY OTHER DAY AS REQUIRED.
     Route: 048
  2. TYLENOL [Suspect]
     Active Substance: ACETAMINOPHEN
     Indication: SINUS CONGESTION
     Dosage: 1-2 TABLETS PER DAY OR EVERY OTHER DAY AS REQUIRED.
     Route: 048

REACTIONS (4)
  - Incorrect dose administered [Unknown]
  - Exposure during pregnancy [Unknown]
  - Off label use [Unknown]
  - Product use issue [Unknown]
